FAERS Safety Report 6369340-3 (Version None)
Quarter: 2009Q3

REPORT INFORMATION
  Report Type: 
  Country: None (occurrence: None)
  Receive Date: 20090824
  Receipt Date: 20090811
  Transmission Date: 20100115
  Serious: Yes (Death, Other)
  Sender: FDA-Public Use
  Company Number: THYM-1001150

PATIENT
  Age: 65 Year
  Sex: Male
  Weight: 111 kg

DRUGS (5)
  1. THYMOGLOBULIN [Suspect]
     Indication: KIDNEY TRANSPLANT REJECTION
     Dosage: INTRAVENOUS
     Route: 042
     Dates: start: 20090727, end: 20090808
  2. THYMOGLOBULIN [Suspect]
     Indication: RENAL TRANSPLANT
     Dosage: INTRAVENOUS
     Route: 042
     Dates: start: 20090727, end: 20090808
  3. TACROLIMUS [Concomitant]
  4. CELLCEPT [Concomitant]
  5. PREDNISONE TAB [Concomitant]

REACTIONS (7)
  - CARDIOPULMONARY FAILURE [None]
  - ELECTROMECHANICAL DISSOCIATION [None]
  - HYPERTENSION [None]
  - KIDNEY TRANSPLANT REJECTION [None]
  - MYOCARDIAL INFARCTION [None]
  - PULMONARY EMBOLISM [None]
  - PYREXIA [None]
